FAERS Safety Report 19886169 (Version 1)
Quarter: 2021Q3

REPORT INFORMATION
  Report Type: Spontaneous
  Country: IN (occurrence: IN)
  Receive Date: 20210927
  Receipt Date: 20210927
  Transmission Date: 20211014
  Serious: Yes (Death)
  Sender: FDA-Public Use
  Company Number: IN-PFIZER INC-2019489684

PATIENT
  Age: 38 Year
  Sex: Female

DRUGS (1)
  1. CRIZALK [Suspect]
     Active Substance: CRIZOTINIB
     Indication: NON-SMALL CELL LUNG CANCER
     Dosage: 250 MG, 2X/DAY
     Route: 048
     Dates: start: 20170609

REACTIONS (5)
  - Death [Fatal]
  - Odynophagia [Unknown]
  - Oesophagitis [Unknown]
  - Ocular hyperaemia [Unknown]
  - Eye pain [Unknown]
